FAERS Safety Report 5973329-3 (Version None)
Quarter: 2008Q4

REPORT INFORMATION
  Report Type: 
  Country: None (occurrence: None)
  Receive Date: 20081201
  Receipt Date: 20080114
  Transmission Date: 20090506
  Serious: No
  Sender: FDA-Public Use
  Company Number: US-AMGEN-KDL260615

PATIENT
  Sex: Male

DRUGS (3)
  1. ENBREL [Suspect]
     Indication: RHEUMATOID ARTHRITIS
     Route: 058
     Dates: start: 20071231
  2. PLAQUENIL [Concomitant]
     Dates: start: 20070301
  3. METHOTREXATE [Concomitant]
     Route: 048
     Dates: start: 20070101

REACTIONS (2)
  - BACK PAIN [None]
  - NASOPHARYNGITIS [None]
